FAERS Safety Report 10420743 (Version 1)
Quarter: 2014Q1

REPORT INFORMATION
  Report Type: Spontaneous
  Country: US (occurrence: None)
  Receive Date: 20130924
  Receipt Date: 20130924
  Transmission Date: 20141002
  Serious: No
  Sender: FDA-Public Use
  Company Number: 2013000247S

PATIENT
  Sex: Female

DRUGS (1)
  1. OSPHENA (OSPEMIFENE) TABLET [Suspect]
     Indication: DYSPAREUNIA

REACTIONS (1)
  - Headache [None]
